FAERS Safety Report 26000500 (Version 1)
Quarter: 2025Q4

REPORT INFORMATION
  Report Type: Spontaneous
  Country: US (occurrence: None)
  Receive Date: 20251104
  Receipt Date: 20251104
  Transmission Date: 20260118
  Serious: Yes (Hospitalization)
  Sender: FDA-CTU
  Company Number: None

PATIENT
  Sex: Male

DRUGS (1)
  1. ADYNOVATE [Suspect]
     Active Substance: ANTIHEMOPHILIC FACTOR, HUMAN RECOMBINANT
     Indication: Factor VIII deficiency
     Dosage: 4000 UNK - UNKNOWN 2 TIMES A WEEK INTRAVENOUS?
     Route: 042
     Dates: start: 20231212

REACTIONS (4)
  - Haemarthrosis [None]
  - Dehydration [None]
  - Abdominal pain [None]
  - Neoplasm malignant [None]
